APPROVED DRUG PRODUCT: CARBIDOPA AND LEVODOPA
Active Ingredient: CARBIDOPA; LEVODOPA
Strength: 25MG;250MG
Dosage Form/Route: TABLET, ORALLY DISINTEGRATING;ORAL
Application: A078690 | Product #003 | TE Code: AB
Applicant: SUN PHARMACEUTICAL INDUSTRIES LTD
Approved: Jul 31, 2009 | RLD: No | RS: Yes | Type: RX